FAERS Safety Report 24973171 (Version 2)
Quarter: 2025Q1

REPORT INFORMATION
  Report Type: Spontaneous
  Country: US (occurrence: US)
  Receive Date: 20250216
  Receipt Date: 20250318
  Transmission Date: 20250409
  Serious: No
  Sender: JOHNSON AND JOHNSON
  Company Number: US-VIIV HEALTHCARE-US2025013972

PATIENT
  Sex: Female

DRUGS (2)
  1. RILPIVIRINE [Suspect]
     Active Substance: RILPIVIRINE
     Indication: Product used for unknown indication
     Route: 065
  2. CABOTEGRAVIR [Suspect]
     Active Substance: CABOTEGRAVIR
     Indication: Product used for unknown indication
     Route: 065

REACTIONS (1)
  - Product dose omission issue [Unknown]

NARRATIVE: CASE EVENT DATE: 20250101
